FAERS Safety Report 4957674-6 (Version None)
Quarter: 2006Q1

REPORT INFORMATION
  Report Type: 
  Country: None (occurrence: None)
  Receive Date: 20060330
  Receipt Date: 20060317
  Transmission Date: 20060701
  Serious: Yes (Other)
  Sender: FDA-Public Use
  Company Number: PHEH2006US03767

PATIENT
  Sex: Female

DRUGS (3)
  1. DEXAMETHASONE TAB [Concomitant]
  2. ZOMETA [Suspect]
     Indication: MULTIPLE MYELOMA
     Dosage: 4 MG, UNK
     Dates: end: 20051101
  3. THALIDOMIDE [Concomitant]

REACTIONS (1)
  - OSTEONECROSIS [None]
